FAERS Safety Report 8240071-8 (Version None)
Quarter: 2012Q1

REPORT INFORMATION
  Report Type: 
  Country: None (occurrence: None)
  Receive Date: 20120309
  Receipt Date: 20100618
  Transmission Date: 20120608
  Serious: Yes (Other)
  Sender: FDA-Public Use
  Company Number: PHHY2010US31736

PATIENT
  Age: 39 Year
  Sex: Female
  Weight: 112.5 kg

DRUGS (2)
  1. EXTAVIA [Suspect]
     Indication: MULTIPLE SCLEROSIS
     Dosage: SUBCUTANEOUS
     Route: 058
     Dates: start: 20100412, end: 20100506
  2. EPHEDRIN (EPHEDRINE HYDROCHLORIDE) [Concomitant]

REACTIONS (3)
  - PAIN [None]
  - SWELLING FACE [None]
  - RASH [None]
